FAERS Safety Report 20882387 (Version 2)
Quarter: 2022Q2

REPORT INFORMATION
  Report Type: Spontaneous
  Country: US (occurrence: US)
  Receive Date: 20220527
  Receipt Date: 20220628
  Transmission Date: 20220721
  Serious: Yes (Other)
  Sender: FDA-Public Use
  Company Number: US-PFIZER INC-202200758791

PATIENT
  Age: 50 Year
  Sex: Female

DRUGS (1)
  1. SOMAVERT [Suspect]
     Active Substance: PEGVISOMANT
     Indication: Acromegaly
     Dosage: 30 MG, DAILY
     Route: 058
     Dates: start: 20070101

REACTIONS (11)
  - Deafness unilateral [Unknown]
  - Seasonal allergy [Unknown]
  - Ear infection [Unknown]
  - Fatigue [Unknown]
  - Abscess neck [Unknown]
  - Obesity [Unknown]
  - Disease progression [Unknown]
  - Blood chloride increased [Unknown]
  - Aspartate aminotransferase decreased [Unknown]
  - Carbon dioxide decreased [Unknown]
  - Off label use [Unknown]

NARRATIVE: CASE EVENT DATE: 20220517
